FAERS Safety Report 9814972 (Version 2)
Quarter: 2014Q1

REPORT INFORMATION
  Report Type: Spontaneous
  Country: US (occurrence: US)
  Receive Date: 20140113
  Receipt Date: 20140122
  Transmission Date: 20141002
  Serious: No
  Sender: FDA-Public Use
  Company Number: US-009507513-1401USA004550

PATIENT
  Sex: Female

DRUGS (3)
  1. MAXALT [Suspect]
     Indication: MIGRAINE
     Dosage: 10 MG, PRN
     Route: 048
     Dates: start: 201312
  2. METFORMIN [Suspect]
     Indication: DIABETES MELLITUS
     Dosage: UNK
     Dates: start: 201301
  3. DIOVAN [Concomitant]
     Indication: HYPERTENSION

REACTIONS (3)
  - Blood glucose increased [Not Recovered/Not Resolved]
  - Blood pressure increased [Not Recovered/Not Resolved]
  - Headache [Unknown]
